FAERS Safety Report 24657967 (Version 1)
Quarter: 2024Q4

REPORT INFORMATION
  Report Type: Spontaneous
  Country: RO (occurrence: RO)
  Receive Date: 20241125
  Receipt Date: 20241125
  Transmission Date: 20250114
  Serious: Yes (Hospitalization, Other)
  Sender: BRISTOL-MYERS SQUIBB COMPANY
  Company Number: RO-BRISTOL-MYERS SQUIBB COMPANY-2024-182818

PATIENT
  Age: 44 Year
  Sex: Male

DRUGS (6)
  1. NIVOLUMAB [Suspect]
     Active Substance: NIVOLUMAB
     Indication: Clear cell renal cell carcinoma
     Dosage: DOSE: NIVO 3MG/KGC
     Dates: start: 20210811, end: 202109
  2. NIVOLUMAB [Suspect]
     Active Substance: NIVOLUMAB
     Dates: start: 20210910
  3. NIVOLUMAB [Suspect]
     Active Substance: NIVOLUMAB
     Dates: start: 20211001
  4. IPILIMUMAB [Suspect]
     Active Substance: IPILIMUMAB
     Indication: Clear cell renal cell carcinoma
     Dosage: DOSE: IPI 1MG/KGC
     Dates: start: 20210811, end: 202109
  5. IPILIMUMAB [Suspect]
     Active Substance: IPILIMUMAB
     Dates: start: 20210910
  6. IPILIMUMAB [Suspect]
     Active Substance: IPILIMUMAB
     Dates: start: 20211001

REACTIONS (5)
  - Hypokalaemia [Unknown]
  - Immune-mediated enterocolitis [Recovering/Resolving]
  - Renal impairment [Unknown]
  - Pleural effusion [Unknown]
  - Clostridium test positive [Unknown]

NARRATIVE: CASE EVENT DATE: 20210901
